FAERS Safety Report 4344417-2 (Version None)
Quarter: 2004Q2

REPORT INFORMATION
  Report Type: 
  Country: None (occurrence: None)
  Receive Date: 20040421
  Receipt Date: 20040421
  Transmission Date: 20050107
  Serious: Yes (Other)
  Sender: FDA-Public Use
  Company Number: None

PATIENT
  Age: 37 Year
  Sex: Male

DRUGS (5)
  1. RABEPRAZOLE SODIUM [Suspect]
     Indication: GASTROOESOPHAGEAL REFLUX DISEASE
     Dosage: 20 MG BID PO
     Route: 048
     Dates: start: 20040129, end: 20040212
  2. MORPHINE [Concomitant]
  3. LISINOPRIL [Concomitant]
  4. M.V.I. [Concomitant]
  5. VIT D [Concomitant]

REACTIONS (1)
  - OEDEMA PERIPHERAL [None]
